FAERS Safety Report 15717611 (Version 1)
Quarter: 2018Q4

REPORT INFORMATION
  Report Type: Spontaneous
  Country: US (occurrence: US)
  Receive Date: 20181213
  Receipt Date: 20181213
  Transmission Date: 20190205
  Serious: No
  Sender: FDA-Public Use
  Company Number: US-ASTELLAS-2018US018599

PATIENT
  Age: 73 Year
  Sex: Female

DRUGS (3)
  1. TARCEVA [Suspect]
     Active Substance: ERLOTINIB HYDROCHLORIDE
     Indication: COLON CANCER
     Route: 048
     Dates: start: 20170818
  2. TAGRISSO [Concomitant]
     Active Substance: OSIMERTINIB
     Indication: PRODUCT USED FOR UNKNOWN INDICATION
     Dosage: UNK, UNKNOWN FREQ.
     Route: 065
  3. TARCEVA [Suspect]
     Active Substance: ERLOTINIB HYDROCHLORIDE
     Indication: IRON DEFICIENCY ANAEMIA

REACTIONS (7)
  - Alopecia [Unknown]
  - Dysgeusia [Unknown]
  - Off label use [Unknown]
  - Intentional product use issue [Unknown]
  - Drug effect decreased [Unknown]
  - Onychomadesis [Unknown]
  - Rash [Unknown]

NARRATIVE: CASE EVENT DATE: 20180210
